FAERS Safety Report 21323638 (Version 1)
Quarter: 2022Q3

REPORT INFORMATION
  Report Type: Spontaneous
  Country: RU (occurrence: RU)
  Receive Date: 20220912
  Receipt Date: 20220912
  Transmission Date: 20221026
  Serious: Yes (Hospitalization)
  Sender: FDA-Public Use
  Company Number: RU-TAKEDA-2022TUS062961

PATIENT
  Age: 6 Year
  Sex: Male
  Weight: 19.6 kg

DRUGS (1)
  1. VPRIV [Suspect]
     Active Substance: VELAGLUCERASE ALFA
     Indication: Gaucher^s disease
     Dosage: UNK
     Route: 041
     Dates: start: 20220310

REACTIONS (2)
  - Rash papular [Recovering/Resolving]
  - Ear swelling [Recovering/Resolving]

NARRATIVE: CASE EVENT DATE: 20220310
